FAERS Safety Report 10147200 (Version 1)
Quarter: 2014Q2

REPORT INFORMATION
  Report Type: Spontaneous
  Country: CN (occurrence: CN)
  Receive Date: 20140501
  Receipt Date: 20140501
  Transmission Date: 20141212
  Serious: Yes (Death, Other)
  Sender: FDA-Public Use
  Company Number: PHHY2014CN050284

PATIENT
  Age: 59 Year
  Sex: Female

DRUGS (3)
  1. PACLITAXEL [Suspect]
     Indication: METASTATIC SQUAMOUS CELL CARCINOMA
     Dosage: 80 MG/M2/DAY ON DAYS 1 AND 8
     Dates: start: 20081219
  2. CISPLATIN [Suspect]
     Indication: METASTATIC SQUAMOUS CELL CARCINOMA
     Dosage: 25 MG/M2/DAY ON DAYS 2-4
     Dates: start: 20081219
  3. 5-FLUOROURACIL [Suspect]
     Indication: METASTATIC SQUAMOUS CELL CARCINOMA
     Dosage: 500 MG/M2/DAY ON DAYS 1-3
     Dates: start: 20081219

REACTIONS (8)
  - Oesophageal squamous cell carcinoma metastatic [Fatal]
  - Dysphagia [Fatal]
  - Neuropathy peripheral [Unknown]
  - Nausea [Unknown]
  - Vomiting [Unknown]
  - Neutropenia [Unknown]
  - Alopecia [Unknown]
  - Haematotoxicity [Unknown]
